FAERS Safety Report 7512931-4 (Version None)
Quarter: 2011Q2

REPORT INFORMATION
  Report Type: 
  Country: None (occurrence: None)
  Receive Date: 20110531
  Receipt Date: 20110526
  Transmission Date: 20111010
  Serious: Yes (Other)
  Sender: FDA-Public Use
  Company Number: GB-ABBOTT-09P-167-0561247-00

PATIENT
  Age: 19 Year
  Sex: Male

DRUGS (4)
  1. ADALIMUMAB [Suspect]
     Dosage: 80 MG AT WEEK 2
  2. ADALIMUMAB [Suspect]
     Dosage: 160 MG AT WEEK 0
  3. AZATHIOPRINE [Concomitant]
     Indication: CROHN'S DISEASE
  4. ADALIMUMAB [Suspect]
     Indication: CROHN'S DISEASE
     Route: 058

REACTIONS (1)
  - HENOCH-SCHONLEIN PURPURA [None]
